FAERS Safety Report 21880471 (Version 3)
Quarter: 2023Q1

REPORT INFORMATION
  Report Type: Report from Study
  Country: US (occurrence: US)
  Receive Date: 20230118
  Receipt Date: 20230222
  Transmission Date: 20230418
  Serious: Yes (Other)
  Sender: FDA-Public Use
  Company Number: US-ABBVIE-4274651

PATIENT
  Age: 77 Year
  Sex: Female

DRUGS (2)
  1. IMBRUVICA [Suspect]
     Active Substance: IBRUTINIB
     Indication: Mantle cell lymphoma
     Route: 048
     Dates: start: 20210101
  2. IMBRUVICA [Suspect]
     Active Substance: IBRUTINIB
     Indication: Mantle cell lymphoma
     Dosage: DOSE REDUCED
     Route: 048

REACTIONS (8)
  - Macular degeneration [Unknown]
  - Sinusitis [Not Recovered/Not Resolved]
  - Dry eye [Unknown]
  - Thrombosis [Recovering/Resolving]
  - Narcolepsy [Unknown]
  - Visual impairment [Unknown]
  - Blood pressure increased [Unknown]
  - Skin abrasion [Unknown]

NARRATIVE: CASE EVENT DATE: 20210101
